FAERS Safety Report 17910347 (Version 3)
Quarter: 2020Q3

REPORT INFORMATION
  Report Type: Report from Study
  Country: None (occurrence: CA)
  Receive Date: 20200618
  Receipt Date: 20200708
  Transmission Date: 20201103
  Serious: Yes (Hospitalization, Other)
  Sender: FDA-Public Use
  Company Number: CA-ABBVIE-20K-028-3448411-00

PATIENT
  Sex: Male

DRUGS (1)
  1. LUPRON DEPOT [Suspect]
     Active Substance: LEUPROLIDE ACETATE
     Indication: PROSTATE CANCER
     Route: 030

REACTIONS (4)
  - Non-Hodgkin^s lymphoma recurrent [Not Recovered/Not Resolved]
  - Postoperative wound infection [Unknown]
  - Umbilical hernia [Unknown]
  - Gastrointestinal carcinoma [Not Recovered/Not Resolved]
